FAERS Safety Report 19015486 (Version 1)
Quarter: 2021Q1

REPORT INFORMATION
  Report Type: Spontaneous
  Country: FR (occurrence: FR)
  Receive Date: 20210316
  Receipt Date: 20210316
  Transmission Date: 20210420
  Serious: Yes (Life-Threatening, Hospitalization, Other)
  Sender: FDA-Public Use
  Company Number: FR-LUNDBECK-DKLU3030150

PATIENT
  Age: 71 Year
  Sex: Male
  Weight: 60 kg

DRUGS (4)
  1. PIPERACILLIN/TAZOBACTAM [Suspect]
     Active Substance: PIPERACILLIN SODIUM\TAZOBACTAM SODIUM
     Indication: DERMO-HYPODERMITIS
     Route: 042
     Dates: start: 20210116, end: 20210130
  2. VANCOMYCIN MYLAN [Concomitant]
     Active Substance: VANCOMYCIN
     Indication: DERMO-HYPODERMITIS
     Route: 065
     Dates: start: 20210125, end: 20210201
  3. URBANYL [Suspect]
     Active Substance: CLOBAZAM
     Indication: DYSKINESIA
     Route: 048
     Dates: start: 20210129, end: 20210202
  4. BACLOFEN. [Suspect]
     Active Substance: BACLOFEN
     Indication: MUSCLE SPASTICITY
     Route: 048
     Dates: end: 20210202

REACTIONS (2)
  - Altered state of consciousness [Recovering/Resolving]
  - Encephalopathy [Recovering/Resolving]

NARRATIVE: CASE EVENT DATE: 20210125
